FAERS Safety Report 4707010-5 (Version None)
Quarter: 2005Q3

REPORT INFORMATION
  Report Type: 
  Country: None (occurrence: None)
  Receive Date: 20050706
  Receipt Date: 20050602
  Transmission Date: 20060218
  Serious: Yes (Life-Threatening, Hospitalization)
  Sender: FDA-Public Use
  Company Number: JP-NOVOPROD-244574

PATIENT
  Age: 61 Year
  Sex: Male
  Weight: 60 kg

DRUGS (11)
  1. NOVORAPID CHU FLEXPEN [Suspect]
     Indication: INSULIN-REQUIRING TYPE II DIABETES MELLITUS
     Dosage: 20 IU, UNK
     Dates: start: 20050520, end: 20050531
  2. ASPIRIN [Concomitant]
     Dosage: 100 MG, UNK
     Route: 048
     Dates: start: 20041129, end: 20050531
  3. DIART [Concomitant]
     Dosage: 60 MG, UNK
     Route: 048
     Dates: start: 20041129, end: 20050531
  4. LANIRAPID [Concomitant]
     Dosage: .1 MG, UNK
     Route: 048
     Dates: start: 20041129, end: 20050531
  5. ALDACTONE [Concomitant]
     Dosage: 25 MG, UNK
     Route: 048
     Dates: start: 20041129, end: 20050531
  6. GASTER [Concomitant]
     Dosage: 40 MG, UNK
     Route: 048
     Dates: start: 20041129, end: 20050531
  7. WARFARIN [Concomitant]
     Indication: ATHEROSCLEROSIS OBLITERANS
     Dosage: 2.5-3.0 MG
     Route: 048
  8. EUGLUCON [Concomitant]
     Indication: INSULIN-REQUIRING TYPE II DIABETES MELLITUS
     Dosage: 10 MG, UNK
     Route: 048
     Dates: start: 20041129, end: 20050518
  9. ACTOS                                   /CAN/ [Concomitant]
     Indication: INSULIN-REQUIRING TYPE II DIABETES MELLITUS
     Dosage: 30 MG, UNK
     Route: 048
     Dates: start: 20041129, end: 20050518
  10. BASEN [Concomitant]
     Indication: INSULIN-REQUIRING TYPE II DIABETES MELLITUS
     Dosage: .6 MG, UNK
     Route: 048
     Dates: start: 20041129, end: 20050518
  11. HUMULIN [Concomitant]
     Indication: INSULIN-REQUIRING TYPE II DIABETES MELLITUS
     Dates: start: 20050518, end: 20050520

REACTIONS (3)
  - HEPATITIS ACUTE [None]
  - INSOMNIA [None]
  - NAUSEA [None]
